FAERS Safety Report 10044313 (Version 3)
Quarter: 2014Q4

REPORT INFORMATION
  Report Type: Spontaneous
  Country: US (occurrence: US)
  Receive Date: 20140328
  Receipt Date: 20141013
  Transmission Date: 20150528
  Serious: Yes (Congenital Anomaly, Other)
  Sender: FDA-Public Use
  Company Number: US-JNJFOC-20140317474

PATIENT
  Sex: Male

DRUGS (11)
  1. TOPAMAX [Suspect]
     Active Substance: TOPIRAMATE
     Indication: POST-TRAUMATIC STRESS DISORDER
     Dosage: MOTHER^S DOSING.
     Route: 064
     Dates: end: 20050817
  2. TOPAMAX [Suspect]
     Active Substance: TOPIRAMATE
     Indication: BIPOLAR DISORDER
     Dosage: MOTHER^S DOSING.
     Route: 064
     Dates: start: 20050303, end: 200504
  3. ZYPREXA [Suspect]
     Active Substance: OLANZAPINE
     Indication: PSYCHOTIC DISORDER
     Dosage: MOTHER^S DOSING.
     Route: 064
     Dates: end: 200504
  4. TOPAMAX [Suspect]
     Active Substance: TOPIRAMATE
     Indication: DEPRESSION
     Dosage: MOTHER^S DOSING.
     Route: 064
     Dates: start: 20050303, end: 200504
  5. TOPAMAX [Suspect]
     Active Substance: TOPIRAMATE
     Indication: POST-TRAUMATIC STRESS DISORDER
     Dosage: MOTHER^S DOSING.
     Route: 064
     Dates: start: 20050303, end: 200504
  6. TOPAMAX [Suspect]
     Active Substance: TOPIRAMATE
     Indication: DEPRESSION
     Dosage: MOTHER^S DOSING.
     Route: 064
     Dates: end: 20050817
  7. FERROUS SULFATE [Concomitant]
     Active Substance: FERROUS SULFATE\FERROUS SULFATE, DRIED
     Indication: PRODUCT USED FOR UNKNOWN INDICATION
     Dosage: MOTHER^S DOSING.
     Route: 064
  8. NATALCARE VITAMIN [Concomitant]
     Indication: PRODUCT USED FOR UNKNOWN INDICATION
     Dosage: MOTHER^S DOSING.
     Route: 064
  9. LITHIUM CARBONATE. [Suspect]
     Active Substance: LITHIUM CARBONATE
     Indication: BIPOLAR DISORDER
     Dosage: MOTHER^S DOSING.
     Route: 064
     Dates: end: 200504
  10. DEPAKOTE [Suspect]
     Active Substance: DIVALPROEX SODIUM
     Indication: BIPOLAR DISORDER
     Dosage: MOTHER^S DOSING.
     Route: 064
     Dates: end: 200504
  11. TOPAMAX [Suspect]
     Active Substance: TOPIRAMATE
     Indication: BIPOLAR DISORDER
     Dosage: MOTHER^S DOSING.
     Route: 064
     Dates: end: 20050817

REACTIONS (7)
  - Dysarthria [Unknown]
  - Foetal exposure during pregnancy [Recovered/Resolved]
  - Cleft palate [Recovered/Resolved]
  - Atrial septal defect [Recovered/Resolved]
  - Foetal macrosomia [Unknown]
  - Abnormal behaviour [Unknown]
  - Attention deficit/hyperactivity disorder [Unknown]
